FAERS Safety Report 7998434-1 (Version None)
Quarter: 2011Q4

REPORT INFORMATION
  Report Type: 
  Country: None (occurrence: None)
  Receive Date: 20111221
  Receipt Date: 20111019
  Transmission Date: 20120403
  Serious: No
  Sender: FDA-Public Use
  Company Number: US-GLAXOSMITHKLINE-A0949712A

PATIENT
  Age: 49 Year
  Sex: Female

DRUGS (8)
  1. CO Q 10 [Concomitant]
  2. LOVAZA [Suspect]
     Indication: BLOOD TRIGLYCERIDES INCREASED
     Route: 048
     Dates: start: 20110101, end: 20111006
  3. NIASPAN [Concomitant]
  4. CALCIUM CALTRATE [Concomitant]
  5. TAMOXIFEN [Concomitant]
  6. ZETIA [Concomitant]
  7. XANAX [Concomitant]
  8. CRESTOR [Concomitant]

REACTIONS (5)
  - HYPERSENSITIVITY [None]
  - SKIN EXFOLIATION [None]
  - ALOPECIA [None]
  - RASH [None]
  - RASH GENERALISED [None]
